FAERS Safety Report 25124125 (Version 1)
Quarter: 2025Q1

REPORT INFORMATION
  Report Type: Report from Study
  Country: GR (occurrence: GR)
  Receive Date: 20250326
  Receipt Date: 20250326
  Transmission Date: 20250409
  Serious: Yes (Other)
  Sender: UCB
  Company Number: GR-UCBSA-2025017260

PATIENT
  Age: 62 Year
  Sex: Male
  Weight: 100 kg

DRUGS (4)
  1. BIMEKIZUMAB [Suspect]
     Active Substance: BIMEKIZUMAB
     Indication: Psoriasis
     Dates: end: 202410
  2. PLAVIX [Concomitant]
     Active Substance: CLOPIDOGREL BISULFATE
     Indication: Arteriosclerosis
     Dosage: 75 MILLIGRAM, ONCE DAILY (QD)
     Route: 048
     Dates: start: 201201
  3. IVABRADINE [Concomitant]
     Active Substance: IVABRADINE
     Indication: Cardiac failure
     Dosage: 5 MILLIGRAM, ONCE DAILY (QD)
     Dates: start: 201411
  4. THOREVA [Concomitant]
     Indication: Hyperlipidaemia
     Dosage: 20 MILLIGRAM, ONCE DAILY (QD)
     Dates: start: 201004

REACTIONS (2)
  - Lymphoma [Unknown]
  - Splenomegaly [Not Recovered/Not Resolved]

NARRATIVE: CASE EVENT DATE: 20241014
